FAERS Safety Report 5817516-3 (Version None)
Quarter: 2008Q3

REPORT INFORMATION
  Report Type: 
  Country: None (occurrence: None)
  Receive Date: 20080722
  Receipt Date: 20080714
  Transmission Date: 20090109
  Serious: Yes (Other)
  Sender: FDA-Public Use
  Company Number: US-JNJFOC-20080703833

PATIENT
  Age: 73 Year
  Sex: Female
  Weight: 65.77 kg

DRUGS (5)
  1. IMODIUM [Suspect]
     Indication: ABDOMINAL DISTENSION
  2. IMODIUM [Suspect]
     Indication: DIARRHOEA
  3. IMODIUM [Suspect]
     Indication: FLATULENCE
  4. CALCIUM [Concomitant]
  5. MULTI-VITAMIN [Concomitant]

REACTIONS (7)
  - CHOKING [None]
  - DEPRESSED LEVEL OF CONSCIOUSNESS [None]
  - DYSPHAGIA [None]
  - DYSPNOEA [None]
  - FOREIGN BODY TRAUMA [None]
  - VOMITING [None]
  - WRONG TECHNIQUE IN DRUG USAGE PROCESS [None]
